FAERS Safety Report 18230113 (Version 1)
Quarter: 2020Q3

REPORT INFORMATION
  Report Type: Spontaneous
  Country: US (occurrence: US)
  Receive Date: 20200903
  Receipt Date: 20200903
  Transmission Date: 20201103
  Serious: No
  Sender: FDA-Public Use
  Company Number: US-TEVA-2020-US-1822568

PATIENT
  Sex: Female

DRUGS (1)
  1. BUPRENORPHINE PATCH [Suspect]
     Active Substance: BUPRENORPHINE
     Route: 061

REACTIONS (3)
  - Thermal burn [Unknown]
  - Blister [Unknown]
  - Hypersensitivity [Unknown]
